FAERS Safety Report 5755027-4 (Version None)
Quarter: 2008Q2

REPORT INFORMATION
  Report Type: 
  Country: None (occurrence: None)
  Receive Date: 20080528
  Receipt Date: 20080528
  Transmission Date: 20081010
  Serious: Yes (Hospitalization)
  Sender: FDA-Public Use
  Company Number: None

PATIENT
  Sex: Female
  Weight: 84.73 kg

DRUGS (2)
  1. CARBOPLATIN [Suspect]
     Dosage: 400 MG
  2. TAXOL [Suspect]
     Dosage: 330 MG

REACTIONS (4)
  - BLOOD POTASSIUM DECREASED [None]
  - CHOLECYSTITIS ACUTE [None]
  - CHOLELITHIASIS [None]
  - PANCREATITIS [None]
